FAERS Safety Report 14583651 (Version 1)
Quarter: 2018Q1

REPORT INFORMATION
  Report Type: Spontaneous
  Country: US (occurrence: US)
  Receive Date: 20180227
  Receipt Date: 20180227
  Transmission Date: 20180509
  Serious: No
  Sender: FDA-Public Use
  Company Number: None

PATIENT
  Age: 55 Year
  Sex: Male
  Weight: 108.9 kg

DRUGS (1)
  1. ERTAPENEM. [Suspect]
     Active Substance: ERTAPENEM SODIUM
     Indication: OSTEOMYELITIS
     Route: 041
     Dates: start: 20170901, end: 20180129

REACTIONS (3)
  - Haemoglobin decreased [None]
  - Red blood cell count decreased [None]
  - Haematocrit decreased [None]

NARRATIVE: CASE EVENT DATE: 20180129
